FAERS Safety Report 4710666-4 (Version None)
Quarter: 2005Q3

REPORT INFORMATION
  Report Type: 
  Country: None (occurrence: None)
  Receive Date: 20050711
  Receipt Date: 20030620
  Transmission Date: 20060218
  Serious: Yes (Death, Hospitalization)
  Sender: FDA-Public Use
  Company Number: US-MERCK-0306USA02641

PATIENT
  Age: 67 Year
  Sex: Female

DRUGS (13)
  1. ZOCOR [Suspect]
     Indication: BLOOD CHOLESTEROL INCREASED
     Route: 048
     Dates: end: 20021001
  2. ATROVENT [Concomitant]
     Route: 055
  3. TIAZAC [Concomitant]
     Route: 048
  4. MAXZIDE [Concomitant]
     Route: 048
  5. ALLEGRA [Concomitant]
     Indication: HYPERSENSITIVITY
     Route: 048
  6. REGLAN [Concomitant]
     Route: 048
  7. KLONOPIN [Concomitant]
     Route: 065
  8. KLONOPIN [Concomitant]
     Route: 065
  9. MIRAPEX [Concomitant]
     Route: 065
  10. SERTRALINE HYDROCHLORIDE [Concomitant]
     Indication: MOOD ALTERED
     Route: 048
  11. ESTRADIOL [Concomitant]
     Route: 048
  12. FOSAMAX [Concomitant]
     Route: 048
  13. RANITIDINE [Concomitant]
     Route: 048

REACTIONS (46)
  - ACUTE RESPIRATORY DISTRESS SYNDROME [None]
  - ANAEMIA [None]
  - ANXIETY [None]
  - ARTHRALGIA [None]
  - ASCITES [None]
  - BACK PAIN [None]
  - BRONCHITIS [None]
  - BRONCHOSPASM [None]
  - CHEST INJURY [None]
  - CHOLELITHIASIS [None]
  - CLOSED HEAD INJURY [None]
  - COMPRESSION FRACTURE [None]
  - CONTUSION [None]
  - DEATH [None]
  - DEPRESSED MOOD [None]
  - DISSEMINATED INTRAVASCULAR COAGULATION [None]
  - DIZZINESS [None]
  - DUODENAL ULCER [None]
  - DYSPNOEA EXERTIONAL [None]
  - FALL [None]
  - FUNGAL SEPSIS [None]
  - HAEMOPTYSIS [None]
  - HAND FRACTURE [None]
  - HEADACHE [None]
  - HYPOKALAEMIA [None]
  - HYPONATRAEMIA [None]
  - HYPOTENSION [None]
  - INTERVERTEBRAL DISC DEGENERATION [None]
  - INTERVERTEBRAL DISC DISPLACEMENT [None]
  - MEMORY IMPAIRMENT [None]
  - METABOLIC ENCEPHALOPATHY [None]
  - MUSCLE SPASMS [None]
  - NAUSEA [None]
  - OESOPHAGEAL ULCER [None]
  - ORTHOSTATIC HYPOTENSION [None]
  - PANCREATIC ABSCESS [None]
  - PANCREATITIS ACUTE [None]
  - PYREXIA [None]
  - RENAL FAILURE ACUTE [None]
  - RESPIRATORY FAILURE [None]
  - RHABDOMYOLYSIS [None]
  - SEPSIS [None]
  - SHOCK [None]
  - SYNCOPE [None]
  - URINARY TRACT INFECTION [None]
  - VOMITING [None]
